FAERS Safety Report 17438466 (Version 1)
Quarter: 2020Q1

REPORT INFORMATION
  Report Type: Spontaneous
  Country: US (occurrence: US)
  Receive Date: 20200204
  Receipt Date: 20200204
  Transmission Date: 20200409
  Serious: Yes (Hospitalization)
  Sender: FDA-Public Use
  Company Number: None

PATIENT
  Age: 57 Year
  Sex: Male

DRUGS (1)
  1. PACERONE [Suspect]
     Active Substance: AMIODARONE HYDROCHLORIDE
     Indication: ATRIAL FIBRILLATION
     Dates: start: 20190815, end: 20191122

REACTIONS (9)
  - Pneumonia [None]
  - Dyspnoea [None]
  - White blood cell count increased [None]
  - Cough [None]
  - Interstitial lung disease [None]
  - Toxicity to various agents [None]
  - Pulmonary toxicity [None]
  - Respiratory depression [None]
  - Malaise [None]

NARRATIVE: CASE EVENT DATE: 20191122
